FAERS Safety Report 5471501-2 (Version None)
Quarter: 2007Q3

REPORT INFORMATION
  Report Type: 
  Country: None (occurrence: None)
  Receive Date: 20070928
  Receipt Date: 20061128
  Transmission Date: 20080115
  Serious: No
  Sender: FDA-Public Use
  Company Number: US-BRISTOL-MYERS SQUIBB COMPANY-13590591

PATIENT
  Sex: Male
  Weight: 83 kg

DRUGS (5)
  1. DEFINITY [Suspect]
     Indication: STRESS ECHOCARDIOGRAM
     Route: 042
     Dates: start: 20061128, end: 20061128
  2. NADOLOL [Concomitant]
  3. LACTULOSE [Concomitant]
  4. NEXIUM [Concomitant]
  5. CENTRUM SILVER [Concomitant]

REACTIONS (1)
  - MYALGIA [None]
